FAERS Safety Report 21000668 (Version 1)
Quarter: 2022Q2

REPORT INFORMATION
  Report Type: Spontaneous
  Country: JP (occurrence: JP)
  Receive Date: 20220623
  Receipt Date: 20220623
  Transmission Date: 20220720
  Serious: Yes (Hospitalization)
  Sender: FDA-Public Use
  Company Number: JP-LUNDBECK-DKLU3049375

PATIENT
  Age: 86 Year
  Sex: Male

DRUGS (5)
  1. DROXIDOPA [Suspect]
     Active Substance: DROXIDOPA
     Indication: Hypotension
     Route: 048
     Dates: end: 20220527
  2. AMEZINIUM METILSULFATE [Suspect]
     Active Substance: AMEZINIUM METILSULFATE
     Indication: Product used for unknown indication
     Route: 048
     Dates: end: 20220527
  3. LANSOPRAZOLE [Suspect]
     Active Substance: LANSOPRAZOLE
     Indication: Product used for unknown indication
     Route: 048
     Dates: end: 20220527
  4. SENNOSIDES A AND B [Suspect]
     Active Substance: SENNOSIDES A AND B
     Indication: Product used for unknown indication
     Route: 048
     Dates: end: 20220527
  5. ENSURE [Suspect]
     Active Substance: AMINO ACIDS\DEXTROSE\ELECTROLYTES NOS\SOYBEAN OIL\VITAMINS
     Indication: Product used for unknown indication
     Route: 048
     Dates: end: 20220527

REACTIONS (1)
  - Pneumonia aspiration [Recovering/Resolving]
